FAERS Safety Report 11741661 (Version 3)
Quarter: 2016Q1

REPORT INFORMATION
  Report Type: Report from Study
  Country: US (occurrence: US)
  Receive Date: 20151116
  Receipt Date: 20160125
  Transmission Date: 20160525
  Serious: Yes (Other)
  Sender: FDA-Public Use
  Company Number: US-SUN PHARMACEUTICAL INDUSTRIES LTD-2015US-099634

PATIENT

DRUGS (1)
  1. ABSORICA [Suspect]
     Active Substance: ISOTRETINOIN
     Indication: ACNE
     Dosage: BID
     Route: 048

REACTIONS (8)
  - Epistaxis [Recovering/Resolving]
  - Nasal dryness [Recovering/Resolving]
  - Sinus congestion [Recovered/Resolved]
  - Dry skin [Recovering/Resolving]
  - Fatigue [Recovering/Resolving]
  - Vomiting [Recovered/Resolved]
  - Oropharyngeal pain [Recovered/Resolved]
  - Anhedonia [Recovering/Resolving]

NARRATIVE: CASE EVENT DATE: 20150424
